FAERS Safety Report 26184249 (Version 1)
Quarter: 2025Q4

REPORT INFORMATION
  Report Type: Spontaneous
  Country: BR (occurrence: None)
  Receive Date: 20251222
  Receipt Date: 20251222
  Transmission Date: 20260119
  Serious: Yes (Disabling, Other)
  Sender: AUROBINDO
  Company Number: BR-MLMSERVICE-20251204-PI731740-00099-1

PATIENT
  Age: 41 Year
  Sex: Female

DRUGS (1)
  1. CIPROFLOXACIN [Suspect]
     Active Substance: CIPROFLOXACIN
     Indication: Urinary tract infection
     Dosage: 500 MILLIGRAM, TWO TIMES A DAY (5-DAY COURSE)
     Route: 065
     Dates: start: 20240214, end: 20240218

REACTIONS (4)
  - Paresis [Recovered/Resolved]
  - Intermittent claudication [Recovered/Resolved]
  - Tendon disorder [Recovered/Resolved]
  - Greater trochanteric pain syndrome [Recovered/Resolved]

NARRATIVE: CASE EVENT DATE: 20240303
